FAERS Safety Report 17976134 (Version 1)
Quarter: 2020Q3

REPORT INFORMATION
  Report Type: Spontaneous
  Country: RO (occurrence: RO)
  Receive Date: 20200702
  Receipt Date: 20200702
  Transmission Date: 20201103
  Serious: Yes (Other)
  Sender: FDA-Public Use
  Company Number: NVSC2020RO181480

PATIENT
  Age: 75 Year
  Sex: Male

DRUGS (9)
  1. AVASTIN [Suspect]
     Active Substance: BEVACIZUMAB
     Dosage: 7.5 MG/KG (MAINTENANCE CHEMOTHERAPY)
     Route: 065
     Dates: start: 201806, end: 2019
  2. AVASTIN [Suspect]
     Active Substance: BEVACIZUMAB
     Dosage: 7.5 MG/KG (FIRST?LINE TREATMENT)
     Route: 065
     Dates: start: 201802
  3. XELODA [Suspect]
     Active Substance: CAPECITABINE
     Indication: RECTAL NEOPLASM
     Dosage: ADJUVANT CHEMOTHERAPY ? 6 CYCLES
     Route: 048
  4. XELODA [Suspect]
     Active Substance: CAPECITABINE
     Dosage: DAY 1?14, 1 CYCLE
     Route: 065
     Dates: start: 2020
  5. AVASTIN [Suspect]
     Active Substance: BEVACIZUMAB
     Indication: LYMPHADENOPATHY
     Dosage: 7.5 MG/KG
     Route: 065
     Dates: end: 2020
  6. XELODA [Suspect]
     Active Substance: CAPECITABINE
     Indication: LYMPHADENOPATHY
     Dosage: DAY 1?14 (MAINTENANCE CHEMOTHERAPY)
     Route: 065
     Dates: start: 201802, end: 201806
  7. OXALIPLATIN. [Suspect]
     Active Substance: OXALIPLATIN
     Indication: RECTAL NEOPLASM
     Dosage: UNK, (ADJUVANT CHEMOTHERAPY ? 6 CYCLES)
     Route: 065
  8. OXALIPLATIN. [Suspect]
     Active Substance: OXALIPLATIN
     Indication: LYMPHADENOPATHY
     Dosage: 130 MG/M2 (6 CYCLES XELOX)
     Route: 065
     Dates: start: 201802, end: 201806
  9. XELODA [Suspect]
     Active Substance: CAPECITABINE
     Dosage: DAY 1?14 (MAINTENANCE CHEMOTHERAPY)
     Route: 065
     Dates: start: 201806

REACTIONS (6)
  - Proteinuria [Unknown]
  - Cough [Unknown]
  - Prostate cancer [Unknown]
  - Hypertension [Unknown]
  - Skin toxicity [Unknown]
  - Escherichia urinary tract infection [Unknown]

NARRATIVE: CASE EVENT DATE: 202003
